FAERS Safety Report 6140498-4 (Version None)
Quarter: 2009Q1

REPORT INFORMATION
  Report Type: 
  Country: None (occurrence: None)
  Receive Date: 20090331
  Receipt Date: 20090316
  Transmission Date: 20090719
  Serious: Yes (Hospitalization)
  Sender: FDA-Public Use
  Company Number: US-2009-00085

PATIENT
  Age: 65 Year
  Sex: Male
  Weight: 104.7809 kg

DRUGS (1)
  1. LISINOPRIL [Suspect]
     Dosage: PATIENT TOOK 26 HALF TABLETS DURING THE 16 DAYS; EXTRA DAYS WERE NOT ACCOUNTED FOR BY REPORTER.
     Dates: start: 20090210, end: 20090226

REACTIONS (2)
  - HYPERTENSION [None]
  - PRODUCT QUALITY ISSUE [None]
